FAERS Safety Report 6645653-2 (Version None)
Quarter: 2010Q1

REPORT INFORMATION
  Report Type: 
  Country: None (occurrence: None)
  Receive Date: 20100319
  Receipt Date: 20100319
  Transmission Date: 20100710
  Serious: Yes (Hospitalization)
  Sender: FDA-Public Use
  Company Number: None

PATIENT
  Sex: Male
  Weight: 74.9 kg

DRUGS (3)
  1. BEVACIZUMAB (RHUMAB VEGF) [Suspect]
     Dosage: 1125 MG
     Dates: end: 20100305
  2. CARBOPLATIN [Suspect]
     Dosage: 678 MG
     Dates: end: 20100305
  3. TAXOL [Suspect]
     Dosage: 380 MG
     Dates: end: 20100305

REACTIONS (1)
  - PULMONARY EMBOLISM [None]
